FAERS Safety Report 7622105-4 (Version None)
Quarter: 2011Q3

REPORT INFORMATION
  Report Type: 
  Country: None (occurrence: None)
  Receive Date: 20110720
  Receipt Date: 20110324
  Transmission Date: 20111222
  Serious: Yes (Life-Threatening, Disabling, Other)
  Sender: FDA-Public Use
  Company Number: US-BAYER-2011-005013

PATIENT
  Age: 55 Year
  Sex: Female

DRUGS (4)
  1. TOPAMAX [Concomitant]
     Dosage: 50 MG, UNK
  2. GABAPENTIN [Concomitant]
     Dosage: 600 MG, UNK
  3. AVELOX [Suspect]
     Indication: SINUSITIS BACTERIAL
     Dosage: 400 MG, QD
     Dates: start: 20100101
  4. CYMBALTA [Concomitant]
     Dosage: 30 MG, UNK

REACTIONS (6)
  - PHARYNGEAL OEDEMA [None]
  - URTICARIA [None]
  - HEADACHE [None]
  - DEPRESSED LEVEL OF CONSCIOUSNESS [None]
  - ANAPHYLACTIC SHOCK [None]
  - DYSPNOEA [None]
